FAERS Safety Report 6058060-0 (Version None)
Quarter: 2009Q1

REPORT INFORMATION
  Report Type: 
  Country: None (occurrence: None)
  Receive Date: 20090127
  Receipt Date: 20090127
  Transmission Date: 20090719
  Serious: Yes (Other)
  Sender: FDA-Public Use
  Company Number: 340001M09USA

PATIENT
  Age: 36 Year
  Sex: Female

DRUGS (1)
  1. OVIDREL [Suspect]
     Indication: INFERTILITY FEMALE
     Dosage: 250 MCG, ONCE SUBCUTANEOUS
     Route: 058
     Dates: start: 20081110, end: 20081110

REACTIONS (1)
  - PITUITARY TUMOUR BENIGN [None]
